FAERS Safety Report 7304687-5 (Version None)
Quarter: 2011Q1

REPORT INFORMATION
  Report Type: 
  Country: None (occurrence: None)
  Receive Date: 20110222
  Receipt Date: 20110208
  Transmission Date: 20110831
  Serious: Yes (Death)
  Sender: FDA-Public Use
  Company Number: US-CELGENEUS-163-21880-11021237

PATIENT
  Sex: Female

DRUGS (10)
  1. CENTRUM [Concomitant]
     Route: 065
  2. NEXIUM [Concomitant]
     Route: 065
  3. CELEXA [Concomitant]
     Route: 065
  4. REVLIMID [Suspect]
     Route: 048
     Dates: start: 20101101
  5. ACTONEL [Concomitant]
     Route: 065
  6. VITAMIN D [Concomitant]
     Route: 065
  7. REVLIMID [Suspect]
     Route: 048
     Dates: start: 20101201
  8. REVLIMID [Suspect]
     Route: 048
     Dates: start: 20101201
  9. LEVOTHYROXINE [Concomitant]
     Route: 065
  10. FERROUS SULFATE TAB [Concomitant]
     Route: 065

REACTIONS (1)
  - DEATH [None]
